FAERS Safety Report 9236798 (Version 3)
Quarter: 2013Q2

REPORT INFORMATION
  Report Type: Spontaneous
  Country: DE (occurrence: None)
  Receive Date: 20130415
  Receipt Date: 20130507
  Transmission Date: 20140414
  Serious: Yes (Other)
  Sender: FDA-Public Use
  Company Number: DE-1197516

PATIENT
  Sex: Female

DRUGS (1)
  1. SYSTANE [Suspect]
     Route: 047

REACTIONS (6)
  - Injury corneal [None]
  - Eye pain [None]
  - Eye complication associated with device [None]
  - Hypersensitivity [None]
  - Product formulation issue [None]
  - Feeling abnormal [None]
